FAERS Safety Report 8263660-3 (Version None)
Quarter: 2012Q2

REPORT INFORMATION
  Report Type: 
  Country: None (occurrence: None)
  Receive Date: 20120405
  Receipt Date: 20120322
  Transmission Date: 20120825
  Serious: Yes (Other)
  Sender: FDA-Public Use
  Company Number: FI-ROCHE-1051812

PATIENT
  Sex: Male

DRUGS (1)
  1. TAMIFLU [Suspect]
     Indication: ANTIVIRAL PROPHYLAXIS
     Route: 048
     Dates: start: 20120215, end: 20120220

REACTIONS (6)
  - ABDOMINAL DISCOMFORT [None]
  - SENSATION OF FOREIGN BODY [None]
  - ROSACEA [None]
  - DYSPEPSIA [None]
  - OESOPHAGEAL PAIN [None]
  - ORAL DISORDER [None]
